FAERS Safety Report 6083469-9 (Version None)
Quarter: 2009Q1

REPORT INFORMATION
  Report Type: 
  Country: None (occurrence: None)
  Receive Date: 20090213
  Receipt Date: 20090213
  Transmission Date: 20090719
  Serious: Yes (Hospitalization)
  Sender: FDA-Public Use
  Company Number: None

PATIENT
  Age: 59 Year
  Sex: Female
  Weight: 83.4 kg

DRUGS (13)
  1. SEROQUEL [Suspect]
     Indication: SCHIZOPHRENIA
     Dosage: 950MG PO AT BEDTIME
     Dates: start: 20060630
  2. RISPERIDONE [Suspect]
     Dosage: 4MG PO AT BEDTIME
     Route: 048
     Dates: start: 20080128
  3. FAMOTIDINE [Concomitant]
  4. DOCUSATE NA [Concomitant]
  5. FLOMAX [Concomitant]
  6. ASPIRIN [Concomitant]
  7. BENAZEPRIL HYDROCHLORIDE [Concomitant]
  8. HYDROCHLOROTHIAZIDE [Concomitant]
  9. BENADRYL [Concomitant]
  10. HALOPERIDOL DECANOATE [Concomitant]
  11. KLONOPIN [Concomitant]
  12. LEXAPRO [Concomitant]
  13. METFORMIN [Concomitant]

REACTIONS (1)
  - HALLUCINATION, AUDITORY [None]
